FAERS Safety Report 8837732 (Version 1)
Quarter: 2012Q4

REPORT INFORMATION
  Report Type: 
  Country: US (occurrence: US)
  Receive Date: 20121012
  Receipt Date: 20121012
  Transmission Date: 20130627
  Serious: Yes (Hospitalization)
  Sender: FDA-Public Use
  Company Number: US-BAYER-2012-104446

PATIENT
  Age: 42 Year
  Sex: Female

DRUGS (2)
  1. BEYAZ [Suspect]
  2. PROTONIX [Concomitant]
     Indication: GASTROOESOPHAGEAL REFLUX PROPHYLAXIS

REACTIONS (1)
  - Deep vein thrombosis [None]
